FAERS Safety Report 8321212-0 (Version None)
Quarter: 2012Q2

REPORT INFORMATION
  Report Type: 
  Country: None (occurrence: None)
  Receive Date: 20120430
  Receipt Date: 20120424
  Transmission Date: 20120825
  Serious: Yes (Disabling)
  Sender: FDA-Public Use
  Company Number: CA-PFIZER INC-2012048023

PATIENT
  Age: 31 Year
  Sex: Male
  Weight: 86.168 kg

DRUGS (6)
  1. TRAMADOL HCL [Interacting]
     Indication: POST PROCEDURAL COMPLICATION
  2. VARENICLINE TARTRATE [Suspect]
     Indication: SMOKING CESSATION THERAPY
     Dosage: 0.5 MG, 1X/DAY
     Route: 048
     Dates: start: 20120124, end: 20120127
  3. VARENICLINE TARTRATE [Interacting]
     Dosage: 0.5 MG, 2X/DAY
     Dates: start: 20120128, end: 20120131
  4. TRAMADOL HCL [Interacting]
     Indication: BACK PAIN
     Dosage: 200 MG, 1X/DAY
     Route: 048
     Dates: start: 20080101
  5. VARENICLINE TARTRATE [Interacting]
     Dosage: UNK, 2X/DAY
     Dates: start: 20120206, end: 20120217
  6. VARENICLINE TARTRATE [Interacting]
     Dosage: 1 MG, 2X/DAY
     Dates: start: 20120131, end: 20120202

REACTIONS (2)
  - INHIBITORY DRUG INTERACTION [None]
  - DRUG INEFFECTIVE [None]
